FAERS Safety Report 14846320 (Version 1)
Quarter: 2018Q2

REPORT INFORMATION
  Report Type: Spontaneous
  Country: US (occurrence: US)
  Receive Date: 20180418
  Receipt Date: 20180418
  Transmission Date: 20180711
  Serious: Yes (Hospitalization)
  Sender: FDA-Public Use
  Company Number: None

PATIENT
  Age: 66 Year
  Sex: Male

DRUGS (2)
  1. INLYTA [Suspect]
     Active Substance: AXITINIB
     Indication: RENAL CANCER
     Route: 048
     Dates: start: 20180328
  2. HYDROMORPHON [Concomitant]
     Active Substance: HYDROMORPHONE

REACTIONS (5)
  - Abdominal discomfort [None]
  - Diarrhoea [None]
  - Headache [None]
  - Ageusia [None]
  - Blood pressure increased [None]
